FAERS Safety Report 5509690-3 (Version None)
Quarter: 2007Q4

REPORT INFORMATION
  Report Type: 
  Country: None (occurrence: None)
  Receive Date: 20071107
  Receipt Date: 20071107
  Transmission Date: 20080405
  Serious: Yes (Other)
  Sender: FDA-Public Use
  Company Number: None

PATIENT
  Age: 47 Year
  Sex: Male
  Weight: 88.4514 kg

DRUGS (1)
  1. LYRICA [Suspect]
     Indication: NEURALGIA
     Dosage: 50 MG 1 DAILY PO
     Route: 048
     Dates: start: 20071105, end: 20071106

REACTIONS (4)
  - DIZZINESS [None]
  - HEADACHE [None]
  - INSOMNIA [None]
  - NAUSEA [None]
